FAERS Safety Report 7065084-3 (Version None)
Quarter: 2010Q4

REPORT INFORMATION
  Report Type: 
  Country: None (occurrence: None)
  Receive Date: 20101027
  Receipt Date: 19900816
  Transmission Date: 20110411
  Serious: Yes (Death, Hospitalization)
  Sender: FDA-Public Use
  Company Number: US-ROCHE-900200945001

PATIENT
  Age: 33 Year
  Sex: Male

DRUGS (3)
  1. INTERFERON ALFA-2A [Suspect]
     Route: 058
     Dates: start: 19900713, end: 19900810
  2. ZANTAC [Concomitant]
     Route: 065
  3. ANALGESICS [Concomitant]
     Route: 065

REACTIONS (2)
  - BLAST CRISIS IN MYELOGENOUS LEUKAEMIA [None]
  - BONE PAIN [None]
